FAERS Safety Report 16894806 (Version 1)
Quarter: 2019Q4

REPORT INFORMATION
  Report Type: Spontaneous
  Country: RO (occurrence: RO)
  Receive Date: 20191008
  Receipt Date: 20191008
  Transmission Date: 20200122
  Serious: Yes (Hospitalization)
  Sender: FDA-Public Use
  Company Number: RO-BAYER-2019-181094

PATIENT
  Age: 57 Year
  Sex: Female

DRUGS (1)
  1. ULTRAVIST [Suspect]
     Active Substance: IOPROMIDE
     Indication: COMPUTERISED TOMOGRAM ABDOMEN
     Dosage: 90 ML, ONCE
     Route: 042
     Dates: start: 20190911

REACTIONS (5)
  - Loss of consciousness [None]
  - Angioedema [None]
  - Dyspnoea [None]
  - General physical health deterioration [None]
  - Cyanosis [None]

NARRATIVE: CASE EVENT DATE: 20190911
